FAERS Safety Report 13306090 (Version 2)
Quarter: 2017Q2

REPORT INFORMATION
  Report Type: Spontaneous
  Country: IT (occurrence: IT)
  Receive Date: 20170308
  Receipt Date: 20170614
  Transmission Date: 20170830
  Serious: Yes (Hospitalization)
  Sender: FDA-Public Use
  Company Number: PHHY2017IT033617

PATIENT
  Age: 80 Year
  Sex: Female
  Weight: 73 kg

DRUGS (2)
  1. VOLTAREN [Suspect]
     Active Substance: DICLOFENAC SODIUM
     Indication: OSTEOARTHRITIS
     Dosage: 1 DF, QD
     Route: 048
     Dates: start: 20160930, end: 20161130
  2. OKI [Interacting]
     Active Substance: KETOPROFEN LYSINE
     Indication: OSTEOARTHRITIS
     Dosage: 160 MG, QD
     Route: 048
     Dates: start: 20160930, end: 20161130

REACTIONS (8)
  - Intentional product misuse [Unknown]
  - Dyspnoea [Unknown]
  - Gastroduodenitis [Recovered/Resolved]
  - Anaemia [Recovered/Resolved]
  - Asthenia [Recovered/Resolved]
  - Haematemesis [Recovered/Resolved]
  - Melaena [Recovered/Resolved]
  - Drug interaction [Unknown]

NARRATIVE: CASE EVENT DATE: 20170222
